FAERS Safety Report 7602119-0 (Version None)
Quarter: 2011Q3

REPORT INFORMATION
  Report Type: 
  Country: None (occurrence: None)
  Receive Date: 20110711
  Receipt Date: 20110711
  Transmission Date: 20111222
  Serious: Yes (Other)
  Sender: FDA-Public Use
  Company Number: None

PATIENT
  Age: 80 Year
  Sex: Female
  Weight: 76.8 kg

DRUGS (1)
  1. ALTEPLASE [Suspect]
     Indication: ISCHAEMIC STROKE
     Dosage: 6.9 MG
     Route: 040
     Dates: start: 20110708, end: 20110708

REACTIONS (2)
  - INFUSION RELATED REACTION [None]
  - LIP SWELLING [None]
